FAERS Safety Report 24753736 (Version 1)
Quarter: 2024Q4

REPORT INFORMATION
  Report Type: Spontaneous
  Country: US (occurrence: None)
  Receive Date: 20241218
  Receipt Date: 20241218
  Transmission Date: 20250115
  Serious: Yes (Hospitalization)
  Sender: Public
  Company Number: None

PATIENT
  Age: 69 Year
  Sex: Male
  Weight: 84.4 kg

DRUGS (1)
  1. ABIRATERONE [Suspect]
     Active Substance: ABIRATERONE\ABIRATERONE ACETATE
     Indication: Prostate cancer
     Dosage: 1000 MG DAILY ORAL
     Route: 048
     Dates: start: 20240720, end: 20241106

REACTIONS (7)
  - Cough [None]
  - Respiratory tract congestion [None]
  - Dyspnoea exertional [None]
  - Cardiac failure [None]
  - Atrial fibrillation [None]
  - Tachyarrhythmia [None]
  - Hypervolaemia [None]

NARRATIVE: CASE EVENT DATE: 20241106
